FAERS Safety Report 6571770-1 (Version None)
Quarter: 2010Q1

REPORT INFORMATION
  Report Type: 
  Country: None (occurrence: None)
  Receive Date: 20100205
  Receipt Date: 20100126
  Transmission Date: 20100710
  Serious: Yes (Other)
  Sender: FDA-Public Use
  Company Number: FI-JNJFOC-20090205795

PATIENT
  Age: 34 Year
  Sex: Female

DRUGS (10)
  1. REMICADE [Suspect]
     Indication: RHEUMATOID ARTHRITIS
     Route: 042
     Dates: start: 20010101
  2. REMICADE [Suspect]
     Route: 042
     Dates: start: 20010101
  3. REMICADE [Suspect]
     Route: 042
     Dates: start: 20010101
  4. REMICADE [Suspect]
     Route: 042
     Dates: start: 20010101
  5. REMICADE [Suspect]
     Route: 042
     Dates: start: 20010101
  6. REMICADE [Suspect]
     Route: 042
     Dates: start: 20010101
  7. REMICADE [Suspect]
     Route: 042
     Dates: start: 20010101
  8. ALBETOL [Concomitant]
     Indication: HYPERTENSION
     Dosage: DOSE GIVEN UP TO 200MG X 2
  9. SOLU-CORTEF [Concomitant]
     Indication: PREMEDICATION
     Route: 042
  10. PANADOL [Concomitant]
     Indication: ANALGESIC THERAPY

REACTIONS (5)
  - ARTHRODESIS [None]
  - DRUG EXPOSURE DURING PREGNANCY [None]
  - FAILED INDUCTION OF LABOUR [None]
  - JOINT EFFUSION [None]
  - RHEUMATOID ARTHRITIS [None]
